FAERS Safety Report 9811933 (Version 8)
Quarter: 2015Q4

REPORT INFORMATION
  Report Type: Spontaneous
  Country: US (occurrence: US)
  Receive Date: 20140110
  Receipt Date: 20151103
  Transmission Date: 20160305
  Serious: Yes (Death, Hospitalization, Other)
  Sender: FDA-Public Use
  Company Number: US-SANOFI-AVENTIS-2013SA068562

PATIENT
  Age: 73 Year
  Sex: Male

DRUGS (33)
  1. RANITIDINE [Concomitant]
     Active Substance: RANITIDINE\RANITIDINE HYDROCHLORIDE
     Dosage: STRENGTH: 150MG
     Route: 048
  2. ANTABUSE [Concomitant]
     Active Substance: DISULFIRAM
  3. ZOCOR [Concomitant]
     Active Substance: SIMVASTATIN
  4. PREVACID [Concomitant]
     Active Substance: LANSOPRAZOLE
  5. GABAPENTIN. [Concomitant]
     Active Substance: GABAPENTIN
  6. LOVAZA [Concomitant]
     Active Substance: OMEGA-3-ACID ETHYL ESTERS
     Route: 048
  7. LEXAPRO [Concomitant]
     Active Substance: ESCITALOPRAM OXALATE
     Dosage: 10 MG STRENGTH
     Route: 048
  8. NAPROSYN [Concomitant]
     Active Substance: NAPROXEN
  9. PROTONIX [Concomitant]
     Active Substance: PANTOPRAZOLE SODIUM
  10. ASPIRIN. [Concomitant]
     Active Substance: ASPIRIN
     Route: 048
  11. PLAVIX [Suspect]
     Active Substance: CLOPIDOGREL BISULFATE
     Indication: THROMBOSIS
     Route: 048
     Dates: start: 20060101, end: 20121230
  12. ULTRAM [Concomitant]
     Active Substance: TRAMADOL HYDROCHLORIDE
     Route: 048
  13. MOTRIN [Concomitant]
     Active Substance: IBUPROFEN
  14. AMOXICILLIN. [Concomitant]
     Active Substance: AMOXICILLIN
  15. VICOPROFEN [Concomitant]
     Active Substance: HYDROCODONE BITARTRATE\IBUPROFEN
  16. NORVASC [Concomitant]
     Active Substance: AMLODIPINE BESYLATE
     Route: 048
  17. BACTROBAN [Concomitant]
     Active Substance: MUPIROCIN\MUPIROCIN CALCIUM
  18. AMBIEN [Concomitant]
     Active Substance: ZOLPIDEM TARTRATE
  19. FOLIC ACID. [Concomitant]
     Active Substance: FOLIC ACID
  20. TRAMADOL. [Concomitant]
     Active Substance: TRAMADOL
  21. METOCLOPRAMIDE. [Concomitant]
     Active Substance: METOCLOPRAMIDE
  22. ZANTAC [Concomitant]
     Active Substance: RANITIDINE HYDROCHLORIDE
  23. DIOVAN [Concomitant]
     Active Substance: VALSARTAN
     Route: 048
  24. VICODIN [Concomitant]
     Active Substance: ACETAMINOPHEN\HYDROCODONE BITARTRATE
  25. PANTOPRAZOLE [Concomitant]
     Active Substance: PANTOPRAZOLE SODIUM
  26. NEXIUM [Concomitant]
     Active Substance: ESOMEPRAZOLE MAGNESIUM
  27. KEFLEX [Concomitant]
     Active Substance: CEPHALEXIN
  28. LISINOPRIL. [Concomitant]
     Active Substance: LISINOPRIL
     Dosage: STRENGTH: 10MG
  29. CATAPRES-TTS [Concomitant]
     Active Substance: CLONIDINE
  30. GABAPENTIN. [Concomitant]
     Active Substance: GABAPENTIN
  31. VICODIN ES [Concomitant]
     Active Substance: ACETAMINOPHEN\HYDROCODONE BITARTRATE
     Dosage: DOSE: 750MG-7.5MG
     Route: 048
  32. ATENOLOL. [Concomitant]
     Active Substance: ATENOLOL
  33. CIPRO [Concomitant]
     Active Substance: CIPROFLOXACIN HYDROCHLORIDE

REACTIONS (2)
  - Leg amputation [Unknown]
  - Upper gastrointestinal haemorrhage [Unknown]

NARRATIVE: CASE EVENT DATE: 20101001
